FAERS Safety Report 25689546 (Version 1)
Quarter: 2025Q3

REPORT INFORMATION
  Report Type: Spontaneous
  Country: EU (occurrence: EU)
  Receive Date: 20250818
  Receipt Date: 20250818
  Transmission Date: 20251020
  Serious: Yes (Other)
  Sender: ACCORD
  Company Number: None

PATIENT
  Age: 1 Day
  Sex: Male
  Weight: 2.014 kg

DRUGS (8)
  1. FLUOXETINE HYDROCHLORIDE [Suspect]
     Active Substance: FLUOXETINE HYDROCHLORIDE
     Route: 064
  2. QUETIAPINE [Suspect]
     Active Substance: QUETIAPINE
     Route: 064
  3. DIAZEPAM [Suspect]
     Active Substance: DIAZEPAM
     Route: 064
  4. METFORMIN HYDROCHLORIDE [Suspect]
     Active Substance: METFORMIN HYDROCHLORIDE
     Route: 064
  5. BACLOFEN [Suspect]
     Active Substance: BACLOFEN
     Route: 064
  6. OXAZEPAM [Suspect]
     Active Substance: OXAZEPAM
     Route: 064
  7. DISULFIRAM [Suspect]
     Active Substance: DISULFIRAM
     Route: 064
  8. BUSPIRONE HYDROCHLORIDE [Suspect]
     Active Substance: BUSPIRONE HYDROCHLORIDE
     Route: 064

REACTIONS (4)
  - Premature baby [Recovered/Resolved]
  - Neonatal respiratory distress [Unknown]
  - Hypotonia neonatal [Unknown]
  - Foetal exposure during pregnancy [Recovered/Resolved]

NARRATIVE: CASE EVENT DATE: 20240926
